FAERS Safety Report 4386576-1 (Version None)
Quarter: 2004Q2

REPORT INFORMATION
  Report Type: 
  Country: None (occurrence: None)
  Receive Date: 20040629
  Receipt Date: 20040617
  Transmission Date: 20050107
  Serious: Yes (Hospitalization)
  Sender: FDA-Public Use
  Company Number: FR-BRISTOL-MYERS SQUIBB COMPANY-12618864

PATIENT
  Age: 39 Year
  Sex: Male

DRUGS (10)
  1. VIDEX EC [Suspect]
     Indication: HIV INFECTION
     Route: 048
     Dates: start: 20020806
  2. ZIAGEN [Suspect]
     Indication: HIV INFECTION
     Route: 048
     Dates: start: 20020806
  3. VIREAD [Suspect]
     Indication: HIV INFECTION
     Route: 048
     Dates: start: 20000721
  4. RIVOTRIL [Suspect]
     Indication: HIV INFECTION
     Route: 048
     Dates: start: 20020806
  5. KARDEGIC [Concomitant]
  6. PREVISCAN [Concomitant]
  7. COVERSYL [Concomitant]
  8. MOPRAL [Concomitant]
  9. SECTRAL [Concomitant]
  10. PRAVASTATIN [Concomitant]

REACTIONS (3)
  - CARDIOMYOPATHY [None]
  - MYOCARDIAL INFARCTION [None]
  - PERICARDIAL EFFUSION [None]
